FAERS Safety Report 15374553 (Version 1)
Quarter: 2018Q3

REPORT INFORMATION
  Report Type: Spontaneous
  Country: US (occurrence: US)
  Receive Date: 20180912
  Receipt Date: 20180912
  Transmission Date: 20181010
  Serious: Yes (Other)
  Sender: FDA-Public Use
  Company Number: US-LPDUSPRD-20180871

PATIENT
  Age: 34 Year
  Sex: Female
  Weight: 118.4 kg

DRUGS (20)
  1. INJECTAFER [Suspect]
     Active Substance: FERRIC CARBOXYMALTOSE
     Dosage: 750 MG
     Route: 042
     Dates: start: 20180503, end: 20180510
  2. SYNTHROID [Concomitant]
     Active Substance: LEVOTHYROXINE SODIUM
     Dosage: 1 TABLET DAILY
     Route: 048
     Dates: start: 20180426
  3. NASONEX [Concomitant]
     Active Substance: MOMETASONE FUROATE
     Dosage: 2 SPRAYS BY NASAL ROUTE DAILY
     Route: 045
  4. CELEBREX [Concomitant]
     Active Substance: CELECOXIB
     Dosage: 200 MG
     Route: 048
     Dates: start: 20180417, end: 20180619
  5. ASTELIN [Concomitant]
     Active Substance: AZELASTINE HYDROCHLORIDE
     Dosage: ?????
     Route: 045
     Dates: start: 20170913
  6. PROBIOTIC?10 [Concomitant]
     Dosage: 1CAPSULE TWICE DAILY AS NEEDED
     Route: 048
  7. FERROUS SULFATE. [Concomitant]
     Active Substance: FERROUS SULFATE
     Dosage: 300 MG DAILY
     Route: 048
  8. TOPAMAX [Concomitant]
     Active Substance: TOPIRAMATE
     Dosage: 2 TABLETS NIGHTLY
     Route: 048
     Dates: start: 20180125, end: 20180814
  9. ADIPEX?P [Concomitant]
     Active Substance: PHENTERMINE HYDROCHLORIDE
     Dosage: 1 TABLET DAILY AT 11 AM
     Route: 048
     Dates: start: 20180504, end: 20180603
  10. CYMBALTA [Concomitant]
     Active Substance: DULOXETINE HYDROCHLORIDE
     Dosage: 2 CAPSULES DAILY
     Route: 048
     Dates: start: 20180529
  11. NEURONTIN [Concomitant]
     Active Substance: GABAPENTIN
     Dosage: 1 CAPSULE THREE TIMES DAILY
     Route: 048
     Dates: start: 20180619
  12. NIZORAL [Concomitant]
     Active Substance: KETOCONAZOLE
     Dosage: APPLY TO AFFECTED AREAS DAILY
     Route: 061
     Dates: start: 20180519, end: 20180619
  13. BARIATRIC FUSION [Concomitant]
     Dosage: 1 TABLET  TWICE DAILY
     Route: 048
  14. VITAMIN D3 [Concomitant]
     Active Substance: CHOLECALCIFEROL
     Dosage: ALTERNATE 2 AND 3 CHEWS DAILY
     Route: 048
     Dates: start: 20170313
  15. PRILOSEC [Concomitant]
     Active Substance: OMEPRAZOLE MAGNESIUM
     Dosage: 1 CAPSULE  TWICE DAILY
     Route: 048
     Dates: start: 20180406
  16. ZOFRAN [Concomitant]
     Active Substance: ONDANSETRON HYDROCHLORIDE
     Dosage: 10 MLS EVERY 8 HOURS AS NEEDED
     Route: 048
     Dates: start: 20180227
  17. CARAFATE [Concomitant]
     Active Substance: SUCRALFATE
     Dosage: 10 MLS 4 TIMES DAILY
     Route: 048
     Dates: start: 20180104
  18. TYLENOL ARTHRITIS PAIN [Concomitant]
     Active Substance: ACETAMINOPHEN
     Dosage: 650MG EVERY 8 HOURS AS NEEDED
     Route: 048
  19. VITAMIN C [Concomitant]
     Active Substance: ASCORBIC ACID
     Dosage: 1,000 MG DAILY
     Route: 048
  20. NORCO [Concomitant]
     Active Substance: ACETAMINOPHEN\HYDROCODONE BITARTRATE
     Dosage: 1 TABLET DAILY AS NEEDED
     Route: 048
     Dates: start: 20180530

REACTIONS (17)
  - Neuralgia [Recovering/Resolving]
  - Muscle spasms [Unknown]
  - Myalgia [Recovering/Resolving]
  - Pain in extremity [Unknown]
  - Movement disorder [Unknown]
  - Bone pain [Recovered/Resolved]
  - Back pain [Recovered/Resolved]
  - Hypophosphataemia [Recovered/Resolved]
  - Fatigue [Recovering/Resolving]
  - Arthralgia [Recovered/Resolved]
  - Hypoaesthesia [Recovering/Resolving]
  - Burning sensation [Unknown]
  - Peripheral swelling [Unknown]
  - Muscular weakness [Recovering/Resolving]
  - Paraesthesia [Recovering/Resolving]
  - Depression [Not Recovered/Not Resolved]
  - Nausea [Recovered/Resolved]

NARRATIVE: CASE EVENT DATE: 2018
